FAERS Safety Report 4595939-0 (Version None)
Quarter: 2005Q1

REPORT INFORMATION
  Report Type: 
  Country: None (occurrence: None)
  Receive Date: 20050224
  Receipt Date: 20050207
  Transmission Date: 20050727
  Serious: Yes (Hospitalization)
  Sender: FDA-Public Use
  Company Number: EWC050242644

PATIENT
  Age: 32 Year
  Sex: Male

DRUGS (2)
  1. ZYPREXA [Suspect]
     Indication: AGITATION
     Dosage: 5 MG/1 DAY
     Dates: start: 20050101
  2. BENZODIAZEPINE [Concomitant]

REACTIONS (3)
  - ASTHENIA [None]
  - ELECTROCARDIOGRAM ABNORMAL [None]
  - HYPOKALAEMIA [None]
